FAERS Safety Report 14981707 (Version 1)
Quarter: 2018Q2

REPORT INFORMATION
  Report Type: Spontaneous
  Country: CZ (occurrence: CZ)
  Receive Date: 20180607
  Receipt Date: 20180607
  Transmission Date: 20180711
  Serious: Yes (Other)
  Sender: FDA-Public Use
  Company Number: CZ-TAKEDA-2018MPI007368

PATIENT
  Age: 79 Year
  Sex: Male
  Weight: 79 kg

DRUGS (2)
  1. VELCADE [Suspect]
     Active Substance: BORTEZOMIB
     Dosage: 4 MG, 1/WEEK
     Route: 042
     Dates: start: 20180425
  2. VELCADE [Suspect]
     Active Substance: BORTEZOMIB
     Indication: PLASMA CELL MYELOMA
     Dosage: 3 MG, 1/WEEK
     Route: 042
     Dates: start: 20180104

REACTIONS (1)
  - Malignant melanoma [Recovered/Resolved]

NARRATIVE: CASE EVENT DATE: 20180313
